FAERS Safety Report 11641049 (Version 1)
Quarter: 2015Q4

REPORT INFORMATION
  Report Type: Spontaneous
  Country: US (occurrence: US)
  Receive Date: 20151019
  Receipt Date: 20151019
  Transmission Date: 20160304
  Serious: No
  Sender: FDA-Public Use
  Company Number: US-APOTEX-2015AP010094

PATIENT

DRUGS (1)
  1. FLUTICASONE PROPIONATE. [Suspect]
     Active Substance: FLUTICASONE PROPIONATE
     Indication: PRODUCT USED FOR UNKNOWN INDICATION
     Dosage: 2 DF, IN EACH NOSTRIL DAILY
     Route: 045

REACTIONS (5)
  - Product odour abnormal [Unknown]
  - Dysgeusia [Unknown]
  - Product taste abnormal [Unknown]
  - Retching [Unknown]
  - Parosmia [Unknown]
